FAERS Safety Report 5402567-3 (Version None)
Quarter: 2007Q3

REPORT INFORMATION
  Report Type: 
  Country: None (occurrence: None)
  Receive Date: 20070801
  Receipt Date: 20070123
  Transmission Date: 20080115
  Serious: No
  Sender: FDA-Public Use
  Company Number: A0631929A

PATIENT
  Age: 28 Year
  Sex: Female
  Weight: 74.5 kg

DRUGS (5)
  1. IMITREX [Suspect]
     Indication: MIGRAINE
     Route: 048
     Dates: start: 20061215, end: 20061215
  2. ADVAIR DISKUS 100/50 [Concomitant]
  3. ALLEGRA [Concomitant]
  4. NASACORT [Concomitant]
     Dosage: 2SPR PER DAY
  5. SINGULAIR [Concomitant]
     Dosage: 10MG PER DAY

REACTIONS (5)
  - FATIGUE [None]
  - HYPERSENSITIVITY [None]
  - INFLUENZA LIKE ILLNESS [None]
  - NAUSEA [None]
  - PAIN [None]
